FAERS Safety Report 9310992 (Version 1)
Quarter: 2013Q2

REPORT INFORMATION
  Report Type: Report from Study
  Country: CA (occurrence: CA)
  Receive Date: 20130528
  Receipt Date: 20130528
  Transmission Date: 20140414
  Serious: Yes (Other)
  Sender: FDA-Public Use
  Company Number: CA-JNJFOC-20130514815

PATIENT
  Age: 58 Year
  Sex: Male
  Weight: 89 kg

DRUGS (5)
  1. REMICADE [Suspect]
     Indication: RHEUMATOID ARTHRITIS
     Route: 042
     Dates: start: 20121016
  2. METHOTREXATE [Suspect]
     Indication: PRODUCT USED FOR UNKNOWN INDICATION
     Route: 065
  3. OXEPAM [Concomitant]
     Route: 065
  4. ANTIDEPRESSANT [Concomitant]
     Indication: DEPRESSION
     Route: 065
  5. DILAUDID [Concomitant]
     Route: 065

REACTIONS (1)
  - Rheumatoid lung [Not Recovered/Not Resolved]
